FAERS Safety Report 24575258 (Version 1)
Quarter: 2024Q4

REPORT INFORMATION
  Report Type: Report from Study
  Country: US (occurrence: US)
  Receive Date: 20241104
  Receipt Date: 20241104
  Transmission Date: 20250115
  Serious: Yes (Other)
  Sender: BAYER HEALTHCARE LLC
  Company Number: US-BAYER-2024A153725

PATIENT
  Age: 34 Year
  Sex: Female

DRUGS (1)
  1. ASPIRIN [Suspect]
     Active Substance: ASPIRIN
     Dosage: UNK

REACTIONS (2)
  - Angioedema [None]
  - Rash [None]
